FAERS Safety Report 7513243-5 (Version None)
Quarter: 2011Q2

REPORT INFORMATION
  Report Type: 
  Country: None (occurrence: None)
  Receive Date: 20110531
  Receipt Date: 20110425
  Transmission Date: 20111010
  Serious: Yes (Other)
  Sender: FDA-Public Use
  Company Number: US-BAYER-201033891NA

PATIENT
  Age: 25 Year
  Sex: Female
  Weight: 83.9 kg

DRUGS (10)
  1. YAZ [Suspect]
     Indication: HYPERANDROGENISM
  2. PHENTERMINE HYDROCHLORIDE [Concomitant]
  3. NUVARING [Concomitant]
     Dosage: UNK
     Dates: start: 20070701
  4. YASMIN [Suspect]
     Indication: HYPERANDROGENISM
     Dosage: UNK
     Dates: start: 20060101, end: 20090901
  5. CONTRACEPTIVES NOS [Concomitant]
     Indication: PRODUCT USED FOR UNKNOWN INDICATION
     Dosage: UNK
     Dates: start: 20070801, end: 20071201
  6. YAZ [Suspect]
     Indication: CONTRACEPTION
     Dosage: UNK
     Dates: start: 20050101, end: 20090901
  7. DROSPIRENONE AND ETHINYL ESTRADIOL [Suspect]
     Indication: CONTRACEPTION
  8. IBUPROFEN [Concomitant]
  9. YASMIN [Suspect]
     Indication: CONTRACEPTION
  10. DROSPIRENONE AND ETHINYL ESTRADIOL [Suspect]
     Indication: HYPERANDROGENISM
     Dosage: UNK
     Dates: start: 20060101, end: 20090901

REACTIONS (10)
  - BLOOD PRESSURE INCREASED [None]
  - IRRITABLE BOWEL SYNDROME [None]
  - GALLBLADDER DISORDER [None]
  - BILIARY COLIC [None]
  - ABDOMINAL PAIN [None]
  - CHEST PAIN [None]
  - DEPRESSION [None]
  - LOSS OF LIBIDO [None]
  - BLOOD CHOLESTEROL INCREASED [None]
  - NIGHT SWEATS [None]
